FAERS Safety Report 24733053 (Version 9)
Quarter: 2025Q2

REPORT INFORMATION
  Report Type: Spontaneous
  Country: US (occurrence: US)
  Receive Date: 20241213
  Receipt Date: 20250610
  Transmission Date: 20250717
  Serious: Yes (Other)
  Sender: SANOFI AVENTIS
  Company Number: US-SA-2024SA367824

PATIENT
  Age: 22 Year
  Sex: Female
  Weight: 63.18 kg

DRUGS (54)
  1. DUPIXENT [Suspect]
     Active Substance: DUPILUMAB
     Indication: Eosinophilic oesophagitis
     Dosage: 300 MG, QW
     Route: 058
     Dates: start: 2024
  2. DUPIXENT [Suspect]
     Active Substance: DUPILUMAB
     Indication: Idiopathic urticaria
  3. SAJAZIR [Suspect]
     Active Substance: ICATIBANT ACETATE
     Indication: Hereditary angioedema
  4. VALACYCLOVIR HYDROCHLORIDE [Concomitant]
     Active Substance: VALACYCLOVIR HYDROCHLORIDE
  5. TYLENOL EXTRA STRENGTH [Concomitant]
     Active Substance: ACETAMINOPHEN
  6. SYMBICORT [Concomitant]
     Active Substance: BUDESONIDE\FORMOTEROL FUMARATE DIHYDRATE
  7. SUDAFED [Concomitant]
     Active Substance: PSEUDOEPHEDRINE HYDROCHLORIDE
  8. SPRIX [Concomitant]
     Active Substance: KETOROLAC TROMETHAMINE
  9. ALBUTEROL SULFATE [Concomitant]
     Active Substance: ALBUTEROL SULFATE
  10. POTASSIUM CHLORIDE [Concomitant]
     Active Substance: POTASSIUM CHLORIDE
  11. ONDANSETRON ODT [ONDANSETRON HYDROCHLORIDE] [Concomitant]
  12. NURTEC ODT [Concomitant]
     Active Substance: RIMEGEPANT SULFATE
  13. NEXIUM [Concomitant]
     Active Substance: ESOMEPRAZOLE MAGNESIUM
  14. NASACORT [Concomitant]
     Active Substance: TRIAMCINOLONE ACETONIDE
  15. MONTELUKAST SODIUM [Concomitant]
     Active Substance: MONTELUKAST SODIUM
  16. DIETARY SUPPLEMENT\HERBALS\MILK THISTLE [Concomitant]
     Active Substance: MILK THISTLE
  17. LIDOCAINE [Concomitant]
     Active Substance: LIDOCAINE
  18. MAG [MAGNESIUM CHLORIDE] [Concomitant]
  19. KETOTIFEN FUMARATE [Concomitant]
     Active Substance: KETOTIFEN FUMARATE
  20. HYDROXYZINE HYDROCHLORIDE [Concomitant]
     Active Substance: HYDROXYZINE HYDROCHLORIDE
  21. HYDROMORPHONE HCL [Concomitant]
     Active Substance: HYDROMORPHONE HYDROCHLORIDE
  22. FAMOTIDINE [Concomitant]
     Active Substance: FAMOTIDINE
  23. EPINEPHRINE [EPINEPHRINE HYDROCHLORIDE] [Concomitant]
  24. ALBUTEROL\IPRATROPIUM [Concomitant]
     Active Substance: ALBUTEROL\IPRATROPIUM
  25. DRONABINOL [Concomitant]
     Active Substance: DRONABINOL
  26. DIGESTIVE ENZYMES [AMYLASE;CELLULASE;LIPASE;MALTASE;PROTEASE NOS;SUCRA [Concomitant]
  27. DICLOFENAC SODIUM [Concomitant]
     Active Substance: DICLOFENAC SODIUM
  28. DIAZEPAM [Concomitant]
     Active Substance: DIAZEPAM
  29. CROMOLYN SODIUM [Concomitant]
     Active Substance: CROMOLYN SODIUM
  30. BUDESONIDE [Concomitant]
     Active Substance: BUDESONIDE
  31. BENADRYL [Concomitant]
     Active Substance: DIPHENHYDRAMINE HYDROCHLORIDE
  32. ACETAZOLAMIDE [Concomitant]
     Active Substance: ACETAZOLAMIDE
  33. LIDOCAINE HYDROCHLORIDE [Concomitant]
     Active Substance: LIDOCAINE HYDROCHLORIDE
  34. BUDESONIDE [Concomitant]
     Active Substance: BUDESONIDE
  35. CALCIUM D GLUCARATE [Concomitant]
  36. BERINERT [Concomitant]
     Active Substance: HUMAN C1-ESTERASE INHIBITOR
     Indication: Hereditary angioedema
  37. PRIVIGEN [Concomitant]
     Active Substance: HUMAN IMMUNOGLOBULIN G
  38. PROGESTERONE [Concomitant]
     Active Substance: PROGESTERONE
  39. AZITHROMYCIN [Concomitant]
     Active Substance: AZITHROMYCIN
  40. DEXAMETHASONE [Concomitant]
     Active Substance: DEXAMETHASONE
  41. QULIPTA [Concomitant]
     Active Substance: ATOGEPANT
  42. HYDROXYZINE [Concomitant]
     Active Substance: HYDROXYZINE HYDROCHLORIDE
  43. POTASSIUM [Concomitant]
     Active Substance: POTASSIUM
  44. CALCIUM [Concomitant]
     Active Substance: CALCIUM
  45. TESTOSTERONE [Concomitant]
     Active Substance: TESTOSTERONE
  46. LEUCOVORIN CALCIUM [Concomitant]
     Active Substance: LEUCOVORIN CALCIUM
  47. MAGNESIUM [Concomitant]
     Active Substance: MAGNESIUM
  48. OCTAGAM IMMUNE GLOBULIN (HUMAN) [Concomitant]
     Active Substance: HUMAN IMMUNOGLOBULIN G
  49. DIPHENHYDRAMINE HYDROCHLORIDE [Concomitant]
     Active Substance: DIPHENHYDRAMINE HYDROCHLORIDE
  50. CARAFATE [Concomitant]
     Active Substance: SUCRALFATE
  51. VALACYCLOVIR HYDROCHLORIDE [Concomitant]
     Active Substance: VALACYCLOVIR HYDROCHLORIDE
  52. HAEGARDA [Concomitant]
     Active Substance: HUMAN C1-ESTERASE INHIBITOR
  53. LIDOCAINE [Concomitant]
     Active Substance: LIDOCAINE
  54. RUCONEST [Concomitant]
     Active Substance: CONESTAT ALFA

REACTIONS (24)
  - Cerebrovascular accident [Unknown]
  - Hereditary angioedema [Not Recovered/Not Resolved]
  - Seizure [Unknown]
  - Alopecia [Not Recovered/Not Resolved]
  - Infection [Unknown]
  - Constipation [Unknown]
  - Vomiting [Unknown]
  - Nausea [Unknown]
  - Peripheral coldness [Unknown]
  - Vein disorder [Unknown]
  - Dyspnoea [Unknown]
  - Oxygen consumption decreased [Unknown]
  - Chest discomfort [Unknown]
  - Psychogenic seizure [Unknown]
  - Aphasia [Unknown]
  - Generalised oedema [Unknown]
  - Injection site bruising [Unknown]
  - Injection site pain [Unknown]
  - Injection site pruritus [Unknown]
  - Injection site oedema [Unknown]
  - Injection site reaction [Unknown]
  - Rash [Unknown]
  - Product use in unapproved indication [Unknown]
  - Therapeutic response unexpected [Unknown]

NARRATIVE: CASE EVENT DATE: 20240101
